FAERS Safety Report 13406490 (Version 1)
Quarter: 2017Q2

REPORT INFORMATION
  Report Type: Spontaneous
  Country: BR (occurrence: BR)
  Receive Date: 20170405
  Receipt Date: 20170405
  Transmission Date: 20170830
  Serious: Yes (Other)
  Sender: FDA-Public Use
  Company Number: BR-ALEXION-A201703398

PATIENT
  Age: 44 Year
  Sex: Male

DRUGS (2)
  1. SOLIRIS [Suspect]
     Active Substance: ECULIZUMAB
     Dosage: UNK
     Route: 042
  2. SOLIRIS [Suspect]
     Active Substance: ECULIZUMAB
     Indication: HAEMOLYTIC URAEMIC SYNDROME
     Dosage: UNK
     Route: 042
     Dates: start: 20161124

REACTIONS (10)
  - Renal tubular necrosis [Unknown]
  - Renal vasculitis [Unknown]
  - Renal impairment [Unknown]
  - Haemolysis [Recovering/Resolving]
  - Dyspnoea [Unknown]
  - Thrombotic microangiopathy [Unknown]
  - Renal disorder [Not Recovered/Not Resolved]
  - Cough [Unknown]
  - C-reactive protein increased [Unknown]
  - Blood creatine increased [Unknown]

NARRATIVE: CASE EVENT DATE: 20161128
